FAERS Safety Report 20724987 (Version 1)
Quarter: 2022Q2

REPORT INFORMATION
  Report Type: Spontaneous
  Country: US (occurrence: None)
  Receive Date: 20220418
  Receipt Date: 20220418
  Transmission Date: 20220721
  Serious: Yes (Disabling)
  Sender: FDA-Public Use
  Company Number: None

PATIENT
  Age: 34 Year
  Sex: Male
  Weight: 74.25 kg

DRUGS (4)
  1. ZUBSOLV [Suspect]
     Active Substance: BUPRENORPHINE HYDROCHLORIDE\NALOXONE HYDROCHLORIDE
     Indication: Drug use disorder
     Dosage: OTHER QUANTITY : 1 TABLET(S);?OTHER FREQUENCY : 1/2 TAB TWICE DAY;?
     Route: 060
     Dates: start: 20160501, end: 20220401
  2. SUBLOCADE [Concomitant]
     Active Substance: BUPRENORPHINE
  3. TYLENOL [Concomitant]
     Active Substance: ACETAMINOPHEN
  4. ORAGEL [Concomitant]

REACTIONS (8)
  - Hypoaesthesia oral [None]
  - Neuropathy peripheral [None]
  - Toothache [None]
  - Oral pain [None]
  - Dry mouth [None]
  - Dental caries [None]
  - Tooth fracture [None]
  - Endodontic procedure [None]

NARRATIVE: CASE EVENT DATE: 20220418
